FAERS Safety Report 4470580-9 (Version None)
Quarter: 2004Q4

REPORT INFORMATION
  Report Type: 
  Country: None (occurrence: None)
  Receive Date: 20041001
  Receipt Date: 20040916
  Transmission Date: 20050328
  Serious: Yes (Life-Threatening, Other)
  Sender: FDA-Public Use
  Company Number: C2003-1822.10

PATIENT
  Age: 22 Year

DRUGS (8)
  1. CYSTAGON [Suspect]
     Dates: start: 19821201
  2. CYSTEAMINE EYE DROPS SIGMA TAU [Suspect]
     Dates: start: 19960101
  3. CYCLOSPORINE [Concomitant]
  4. AZATHIOPRINE [Concomitant]
  5. PREDNISONE [Concomitant]
  6. ENALAPRIL MALEATE [Concomitant]
  7. NIFEDIPINE [Concomitant]
  8. PRAZOSIN HCL [Concomitant]

REACTIONS (3)
  - BENIGN INTRACRANIAL HYPERTENSION [None]
  - PAPILLOEDEMA [None]
  - TREATMENT NONCOMPLIANCE [None]
